FAERS Safety Report 5554976-X (Version None)
Quarter: 2007Q4

REPORT INFORMATION
  Report Type: 
  Country: None (occurrence: None)
  Receive Date: 20071213
  Receipt Date: 20071201
  Transmission Date: 20080405
  Serious: Yes (Hospitalization, Other)
  Sender: FDA-Public Use
  Company Number: US-PFIZER INC-2007101567

PATIENT
  Age: 61 Year
  Sex: Male

DRUGS (11)
  1. SOLU-MEDROL [Suspect]
     Route: 042
  2. PREDNISONE [Suspect]
     Indication: CONDITION AGGRAVATED
  3. ALL OTHER THERAPEUTIC PRODUCTS [Concomitant]
     Dates: start: 20070219, end: 20070710
  4. PRILOSEC [Concomitant]
  5. ACETYLSALICYLIC ACID SRT [Concomitant]
  6. NASAREL [Concomitant]
  7. OXYGEN [Concomitant]
  8. BACTRIM [Concomitant]
  9. AZATHIOPRINE [Concomitant]
  10. CLARITIN [Concomitant]
  11. ALL OTHER THERAPEUTIC PRODUCTS [Concomitant]

REACTIONS (6)
  - BLOOD PRESSURE INCREASED [None]
  - DIZZINESS [None]
  - DYSPNOEA [None]
  - PNEUMONIA [None]
  - PRESYNCOPE [None]
  - URINARY TRACT INFECTION [None]
